FAERS Safety Report 14627771 (Version 1)
Quarter: 2018Q1

REPORT INFORMATION
  Report Type: Spontaneous
  Country: US (occurrence: US)
  Receive Date: 20180312
  Receipt Date: 20180312
  Transmission Date: 20180509
  Serious: No
  Sender: FDA-Public Use
  Company Number: US-MYLANLABS-2018M1014120

PATIENT
  Age: 60 Year
  Sex: Female
  Weight: 104.31 kg

DRUGS (1)
  1. COLYTE WITH FLAVOR PACKS [Suspect]
     Active Substance: POLYETHYLENE GLYCOL 3350\POTASSIUM CHLORIDE\SODIUM BICARBONATE\SODIUM CHLORIDE\SODIUM SULFATE
     Indication: COLONOSCOPY
     Dosage: UNK
     Route: 048
     Dates: start: 20180122, end: 20180122

REACTIONS (5)
  - Nausea [Recovered/Resolved]
  - Drug administration error [Unknown]
  - Retching [Recovered/Resolved]
  - Dysgeusia [Recovered/Resolved]
  - Vomiting [Recovered/Resolved]

NARRATIVE: CASE EVENT DATE: 20180122
